FAERS Safety Report 22367198 (Version 1)
Quarter: 2023Q2

REPORT INFORMATION
  Report Type: Other
  Country: CN (occurrence: None)
  Receive Date: 20230525
  Receipt Date: 20230525
  Transmission Date: 20230722
  Serious: Yes (Other)
  Sender: FDA-Public Use
  Company Number: CN-ROCHE-3353970

PATIENT

DRUGS (4)
  1. TRASTUZUMAB [Suspect]
     Active Substance: TRASTUZUMAB
     Indication: HER2 positive breast cancer
     Route: 042
  2. TRASTUZUMAB [Suspect]
     Active Substance: TRASTUZUMAB
     Dosage: THE FIRST DAY OF EACH CYCLE (21 DAYS PLUS 1 CYCLE), FOR A TOTAL OF 6 CYCLES
     Route: 042
  3. DOXORUBICIN [Suspect]
     Active Substance: DOXORUBICIN
     Indication: HER2 positive breast cancer
     Dosage: 30 TO 35 MG/M2
     Route: 065
  4. DOCETAXEL [Suspect]
     Active Substance: DOCETAXEL
     Indication: HER2 positive breast cancer
     Dosage: 75 TO 80 MG/M2 THE FIRST DAY OF EACH CYCLE (21 DAYS PLUS 1 CYCLE)
     Route: 041

REACTIONS (17)
  - Neutropenia [Unknown]
  - Leukopenia [Unknown]
  - Anaemia [Unknown]
  - Alanine aminotransferase increased [Unknown]
  - Stomatitis [Recovered/Resolved]
  - Palmar-plantar erythrodysaesthesia syndrome [Unknown]
  - Pneumonia [Unknown]
  - Hyperglycaemia [Unknown]
  - Renal failure [Unknown]
  - Aspartate aminotransferase increased [Unknown]
  - Blood creatinine increased [Unknown]
  - Nausea [Unknown]
  - Vomiting [Unknown]
  - Pyrexia [Unknown]
  - Pigmentation disorder [Unknown]
  - Cough [Unknown]
  - Ejection fraction decreased [Unknown]
